FAERS Safety Report 4421101-8 (Version None)
Quarter: 2004Q3

REPORT INFORMATION
  Report Type: 
  Country: None (occurrence: None)
  Receive Date: 20040803
  Receipt Date: 20040719
  Transmission Date: 20050211
  Serious: Yes (Hospitalization)
  Sender: FDA-Public Use
  Company Number: 04P-163-0267468-00

PATIENT
  Age: 65 Year
  Sex: Female
  Weight: 47.6277 kg

DRUGS (10)
  1. HUMIRA [Suspect]
     Indication: RHEUMATOID ARTHRITIS
     Dosage: 40 MG, 1 IN 2 WK, SUBCUTANEOUS
     Route: 058
     Dates: start: 20031201, end: 20040104
  2. HUMIRA [Suspect]
     Indication: RHEUMATOID ARTHRITIS
     Dosage: 40 MG, 1 IN 2 WK, SUBCUTANEOUS
     Route: 058
     Dates: start: 20040301, end: 20040301
  3. HUMIRA [Suspect]
     Indication: RHEUMATOID ARTHRITIS
     Dosage: 40 MG, 1 IN 2 WK, SUBCUTANEOUS
     Route: 058
     Dates: start: 20040601
  4. PREDNISONE [Concomitant]
  5. METHOTREXATE [Concomitant]
  6. ROFECOXIB [Concomitant]
  7. VENLAFAXINE HCL [Concomitant]
  8. LITHIUM [Concomitant]
  9. THYROID TAB [Concomitant]
  10. OXYCOCET [Concomitant]

REACTIONS (3)
  - COMA [None]
  - DRUG INEFFECTIVE [None]
  - FEMUR FRACTURE [None]
